FAERS Safety Report 8220686-3 (Version None)
Quarter: 2012Q1

REPORT INFORMATION
  Report Type: 
  Country: None (occurrence: None)
  Receive Date: 20120320
  Receipt Date: 20120307
  Transmission Date: 20120608
  Serious: Yes (Hospitalization, Other)
  Sender: FDA-Public Use
  Company Number: US-ELI_LILLY_AND_COMPANY-US201203003177

PATIENT
  Sex: Female

DRUGS (8)
  1. LIPITOR [Concomitant]
     Dosage: 40 MG, UNKNOWN
  2. CYMBALTA [Suspect]
     Indication: DEPRESSION
     Dosage: 60 MG, QD
  3. ASPIRIN                                 /USA/ [Concomitant]
     Dosage: 325 MG, QD
  4. VITAMIN D [Concomitant]
     Dosage: 1000 IU, UNKNOWN
  5. KEPPRA                                  /USA/ [Concomitant]
     Dosage: 500 MG, BID
  6. EFFIENT [Concomitant]
     Dosage: 10 MG, UNKNOWN
  7. CYMBALTA [Suspect]
     Dosage: 90 MG, UNK
  8. CYMBALTA [Suspect]
     Dosage: 60 MG, QD

REACTIONS (3)
  - CEREBROVASCULAR ACCIDENT [None]
  - MYOCARDIAL INFARCTION [None]
  - DIZZINESS POSTURAL [None]
